FAERS Safety Report 4656673-1 (Version None)
Quarter: 2005Q2

REPORT INFORMATION
  Report Type: 
  Country: None (occurrence: None)
  Receive Date: 20050331
  Receipt Date: 20040802
  Transmission Date: 20051028
  Serious: Yes (Hospitalization)
  Sender: FDA-Public Use
  Company Number: US085678

PATIENT
  Age: 65 Year
  Sex: Female

DRUGS (5)
  1. NEULASTA [Suspect]
     Indication: CHEMOTHERAPY
     Dosage: 6 MG, 1 IN 1 DAYS, SC
     Route: 058
     Dates: start: 20040715
  2. CYCLOPHOSPHAMIDE [Concomitant]
  3. DOXORUBICIN HYDROCHLORIDE [Concomitant]
  4. VINCRISTINE SULFATE [Concomitant]
  5. PREDNISONE TAB [Concomitant]

REACTIONS (1)
  - FEBRILE NEUTROPENIA [None]
